FAERS Safety Report 9198450 (Version 1)
Quarter: 2013Q1

REPORT INFORMATION
  Report Type: Spontaneous
  Country: US (occurrence: None)
  Receive Date: 20130327
  Receipt Date: 20130327
  Transmission Date: 20140127
  Serious: Yes (Other)
  Sender: FDA-Public Use
  Company Number: None

PATIENT
  Age: 75 Year
  Sex: Female
  Weight: 58.06 kg

DRUGS (3)
  1. CLONAZEPAM [Suspect]
     Indication: ANXIETY
     Route: 048
     Dates: start: 19950101, end: 20130321
  2. CLONAZEPAM [Suspect]
     Indication: SLEEP DISORDER
     Route: 048
     Dates: start: 19950101, end: 20130321
  3. CLONAZEPAM [Suspect]
     Indication: STRESS
     Route: 048
     Dates: start: 19950101, end: 20130321

REACTIONS (5)
  - Laboratory test abnormal [None]
  - Laboratory test interference [None]
  - Drug effect decreased [None]
  - Product quality issue [None]
  - Product substitution issue [None]
